FAERS Safety Report 7260457-8 (Version None)
Quarter: 2011Q1

REPORT INFORMATION
  Report Type: 
  Country: None (occurrence: None)
  Receive Date: 20110130
  Receipt Date: 20101109
  Transmission Date: 20110831
  Serious: No
  Sender: FDA-Public Use
  Company Number: US-ABBOTT-10P-163-0684532-00

PATIENT
  Weight: 110.78 kg

DRUGS (2)
  1. HUMIRA [Suspect]
  2. HUMIRA [Suspect]
     Indication: COLITIS ULCERATIVE

REACTIONS (3)
  - RECTAL HAEMORRHAGE [None]
  - COLITIS ULCERATIVE [None]
  - DRUG EFFECT DECREASED [None]
